FAERS Safety Report 15678909 (Version 1)
Quarter: 2018Q4

REPORT INFORMATION
  Report Type: Spontaneous
  Country: GB (occurrence: GB)
  Receive Date: 20181202
  Receipt Date: 20181202
  Transmission Date: 20190205
  Serious: Yes (Other)
  Sender: FDA-Public Use
  Company Number: GB-JNJFOC-20181127789

PATIENT
  Age: 36 Year
  Sex: Female

DRUGS (1)
  1. PARACETAMOL [Suspect]
     Active Substance: ACETAMINOPHEN
     Indication: PRODUCT USED FOR UNKNOWN INDICATION
     Route: 048
     Dates: start: 20181104, end: 20181104

REACTIONS (5)
  - Lip swelling [Recovering/Resolving]
  - Pharyngeal oedema [Recovering/Resolving]
  - Circumoral oedema [Unknown]
  - Gingival pain [Recovering/Resolving]
  - Breath odour [Unknown]
